FAERS Safety Report 6164680-5 (Version None)
Quarter: 2009Q2

REPORT INFORMATION
  Report Type: 
  Country: None (occurrence: None)
  Receive Date: 20090423
  Receipt Date: 20090421
  Transmission Date: 20091009
  Serious: Yes (Other)
  Sender: FDA-Public Use
  Company Number: US-ASTRAZENECA-2006UW03867

PATIENT
  Age: 78 Year
  Sex: Female
  Weight: 85.7 kg

DRUGS (3)
  1. ARIMIDEX [Suspect]
     Indication: BREAST CANCER
     Route: 048
     Dates: start: 20040606
  2. LIPITOR [Concomitant]
     Indication: BLOOD CHOLESTEROL
  3. FOSAMAX [Concomitant]
     Indication: OSTEOPOROSIS

REACTIONS (3)
  - BODY HEIGHT DECREASED [None]
  - BONE DENSITY DECREASED [None]
  - RETINAL HAEMORRHAGE [None]
